FAERS Safety Report 8799252 (Version 1)
Quarter: 2012Q4

REPORT INFORMATION
  Report Type: 
  Country: US (occurrence: US)
  Receive Date: 20120920
  Receipt Date: 20120920
  Transmission Date: 20130627
  Serious: Yes (Other)
  Sender: FDA-Public Use
  Company Number: US-PFIZER INC-2012231723

PATIENT
  Age: 69 Year
  Sex: Female
  Weight: 77.1 kg

DRUGS (8)
  1. CHANTIX [Suspect]
     Indication: SMOKING CESSATION THERAPY
     Dosage: 0.5 mg, 1x/day
     Route: 048
     Dates: start: 20120915
  2. GABAPENTIN [Concomitant]
     Indication: NEUROPATHY PERIPHERAL
     Dosage: 300 mg, 2x/day
  3. METFORMIN [Concomitant]
     Indication: DIABETES MELLITUS
     Dosage: 500 mg, 4x/day
  4. OMEPRAZOLE [Concomitant]
     Dosage: 20 mg, every alternate day
  5. SIMVASTATIN [Concomitant]
     Dosage: 20 mg, 1x/day
  6. LISINOPRIL W/HYDROCHLOROTHIAZIDE [Concomitant]
     Indication: HYPERTENSION
     Dosage: 20/25 mg, 1x/day
  7. ATENOLOL [Concomitant]
     Dosage: 25 mg, 1x/day
  8. GLIPIZIDE ER [Concomitant]
     Dosage: 5 mg, as needed

REACTIONS (3)
  - Hypertension [Unknown]
  - Dizziness [Unknown]
  - Headache [Unknown]
